FAERS Safety Report 5760843-9 (Version None)
Quarter: 2008Q2

REPORT INFORMATION
  Report Type: 
  Country: None (occurrence: None)
  Receive Date: 20080606
  Receipt Date: 20080529
  Transmission Date: 20081010
  Serious: Yes (Other)
  Sender: FDA-Public Use
  Company Number: US-ROCHE-567393

PATIENT
  Sex: Female
  Weight: 54 kg

DRUGS (2)
  1. CAPECITABINE [Suspect]
     Indication: BREAST CANCER
     Route: 048
     Dates: start: 20080210
  2. FASLODEX [Concomitant]

REACTIONS (4)
  - METASTASES TO BONE [None]
  - METASTASES TO LUNG [None]
  - METASTASES TO SPINE [None]
  - NEOPLASM PROGRESSION [None]
